FAERS Safety Report 12188255 (Version 1)
Quarter: 2016Q1

REPORT INFORMATION
  Report Type: Spontaneous
  Country: DE (occurrence: DE)
  Receive Date: 20160317
  Receipt Date: 20160317
  Transmission Date: 20160526
  Serious: Yes (Other)
  Sender: FDA-Public Use
  Company Number: PHHY2016DE035076

PATIENT
  Age: 86 Year
  Sex: Female

DRUGS (1)
  1. ALENDRONIC ACID [Suspect]
     Active Substance: ALENDRONIC ACID
     Indication: OSTEOPENIA
     Dosage: 70 MG, QW
     Route: 065

REACTIONS (2)
  - Mouth ulceration [Recovered/Resolved]
  - Wrong technique in product usage process [Unknown]
